FAERS Safety Report 5108257-9 (Version None)
Quarter: 2006Q3

REPORT INFORMATION
  Report Type: 
  Country: None (occurrence: None)
  Receive Date: 20060919
  Receipt Date: 20060912
  Transmission Date: 20061208
  Serious: Yes (Hospitalization)
  Sender: FDA-Public Use
  Company Number: 2006CG01481

PATIENT
  Age: 93 Year
  Sex: Male
  Weight: 73 kg

DRUGS (5)
  1. INEXIUM [Suspect]
     Route: 048
     Dates: start: 20060627
  2. CLAMOXYL [Suspect]
     Route: 048
  3. AUGMENTIN [Suspect]
     Route: 048
     Dates: end: 20060627
  4. ZECLAR [Suspect]
     Route: 048
     Dates: start: 20060627
  5. CONTRAMAL [Concomitant]
     Route: 048

REACTIONS (1)
  - PSEUDOMEMBRANOUS COLITIS [None]
